FAERS Safety Report 23950073 (Version 1)
Quarter: 2024Q2

REPORT INFORMATION
  Report Type: Spontaneous
  Country: PL (occurrence: PL)
  Receive Date: 20240607
  Receipt Date: 20240607
  Transmission Date: 20240716
  Serious: Yes (Other)
  Sender: FDA-Public Use
  Company Number: PL-002147023-NVSC2024PL116533

PATIENT
  Age: 63 Year
  Sex: Female

DRUGS (2)
  1. RIBOCICLIB [Suspect]
     Active Substance: RIBOCICLIB
     Indication: Hormone receptor positive breast cancer
     Dosage: UNK
     Route: 065
  2. LETROZOLE [Suspect]
     Active Substance: LETROZOLE
     Indication: Hormone receptor positive breast cancer
     Dosage: UNK
     Route: 065

REACTIONS (4)
  - Neutropenia [Unknown]
  - Electrocardiogram abnormal [Unknown]
  - Bradycardia [Unknown]
  - Hypertension [Unknown]
